FAERS Safety Report 11383629 (Version 2)
Quarter: 2015Q3

REPORT INFORMATION
  Report Type: Spontaneous
  Country: IL (occurrence: US)
  Receive Date: 20150814
  Receipt Date: 20150817
  Transmission Date: 20151125
  Serious: No
  Sender: FDA-Public Use
  Company Number: US-B.I. PHARMACEUTICALS,INC./RIDGEFIELD-2015-BI-42004BP

PATIENT
  Age: 78 Year
  Sex: Female

DRUGS (7)
  1. MAGNESIUM [Concomitant]
     Active Substance: MAGNESIUM
     Indication: MINERAL SUPPLEMENTATION
     Route: 048
  2. SELENIUM [Concomitant]
     Active Substance: SELENIUM
     Indication: SUPPLEMENTATION THERAPY
     Route: 048
  3. ALOE VERA [Concomitant]
     Active Substance: ALOE VERA LEAF
     Indication: SUPPLEMENTATION THERAPY
     Route: 048
  4. OFEV [Suspect]
     Active Substance: NINTEDANIB
     Indication: IDIOPATHIC PULMONARY FIBROSIS
     Dosage: 150 MG
     Route: 048
     Dates: start: 20150801
  5. VITAMIN A [Concomitant]
     Active Substance: VITAMIN A
     Indication: VITAMIN SUPPLEMENTATION
     Route: 048
  6. ACE [Concomitant]
     Indication: SUPPLEMENTATION THERAPY
     Route: 048
  7. ZINC [Concomitant]
     Active Substance: ZINC\ZINC CHLORIDE
     Indication: MINERAL SUPPLEMENTATION
     Route: 048

REACTIONS (1)
  - Headache [Not Recovered/Not Resolved]

NARRATIVE: CASE EVENT DATE: 20150801
